FAERS Safety Report 23716378 (Version 1)
Quarter: 2024Q2

REPORT INFORMATION
  Report Type: Spontaneous
  Country: US (occurrence: US)
  Receive Date: 20240408
  Receipt Date: 20240408
  Transmission Date: 20240717
  Serious: No
  Sender: FDA-Public Use
  Company Number: US-OPELLA-2024OHG011366

PATIENT
  Sex: Female

DRUGS (1)
  1. SELSUN BLUE NOS [Suspect]
     Active Substance: HYDROCORTISONE\PYRITHIONE ZINC\SALICYLIC ACID\SELENIUM SULFIDE
     Indication: Dandruff

REACTIONS (4)
  - Condition aggravated [Unknown]
  - Pruritus [Unknown]
  - Dry skin [Unknown]
  - Drug ineffective [Unknown]
